FAERS Safety Report 8344950-2 (Version None)
Quarter: 2012Q2

REPORT INFORMATION
  Report Type: 
  Country: None (occurrence: None)
  Receive Date: 20120508
  Receipt Date: 20120501
  Transmission Date: 20120825
  Serious: Yes (Hospitalization, Disabling, Other)
  Sender: FDA-Public Use
  Company Number: US-MERCK-1009USA04026

PATIENT
  Age: 55 Year
  Sex: Female
  Weight: 70 kg

DRUGS (2)
  1. VITAMINS (UNSPECIFIED) [Concomitant]
     Route: 065
  2. FOSAMAX [Suspect]
     Indication: OSTEOPOROSIS
     Route: 048
     Dates: end: 20060101

REACTIONS (34)
  - BACK PAIN [None]
  - JAW DISORDER [None]
  - DEPRESSION [None]
  - BLOOD DISORDER [None]
  - BONE LOSS [None]
  - LEUKOPENIA [None]
  - PAROTID GLAND INFLAMMATION [None]
  - PAIN IN EXTREMITY [None]
  - MYOFASCIAL SPASM [None]
  - DERMATITIS [None]
  - OSTEOARTHRITIS [None]
  - VENOUS INSUFFICIENCY [None]
  - ENDOMETRIAL CANCER [None]
  - MITRAL VALVE PROLAPSE [None]
  - ARTHROPATHY [None]
  - CARDIAC DISORDER [None]
  - DENTAL CARIES [None]
  - TOOTH DISORDER [None]
  - SCIATICA [None]
  - ANAEMIA POSTOPERATIVE [None]
  - FRACTURE NONUNION [None]
  - HIP FRACTURE [None]
  - GINGIVITIS [None]
  - RADICULAR PAIN [None]
  - FOOT DEFORMITY [None]
  - DRUG HYPERSENSITIVITY [None]
  - FEMUR FRACTURE [None]
  - BREAST CANCER [None]
  - ANXIETY [None]
  - INTERVERTEBRAL DISC DISORDER [None]
  - TOOTH FRACTURE [None]
  - FALL [None]
  - CARDIAC MURMUR [None]
  - GAIT DISTURBANCE [None]
